FAERS Safety Report 5380761-8 (Version None)
Quarter: 2007Q3

REPORT INFORMATION
  Report Type: 
  Country: None (occurrence: None)
  Receive Date: 20070706
  Receipt Date: 20070629
  Transmission Date: 20080115
  Serious: Yes (Other)
  Sender: FDA-Public Use
  Company Number: A0661715A

PATIENT
  Age: 59 Year
  Sex: Female
  Weight: 82 kg

DRUGS (7)
  1. AVANDIA [Suspect]
     Route: 048
     Dates: start: 20070621
  2. METFORMIN HCL [Concomitant]
     Route: 048
     Dates: start: 19920101
  3. ENALAPRIL [Concomitant]
     Dates: start: 19820101
  4. GLYBENCLAMIDE [Concomitant]
     Dosage: 4TAB PER DAY
     Route: 048
     Dates: start: 19920101
  5. ATENOLOL [Concomitant]
     Dosage: 50MG PER DAY
     Route: 048
     Dates: start: 20060101
  6. HYDROCHLOROTHIAZIDE [Concomitant]
     Route: 048
     Dates: start: 19820101
  7. AMLODIPINE BESYLATE [Concomitant]
     Route: 048
     Dates: start: 20060101

REACTIONS (1)
  - SYNCOPE [None]
